FAERS Safety Report 16566983 (Version 1)
Quarter: 2019Q3

REPORT INFORMATION
  Report Type: Spontaneous
  Country: NL (occurrence: NL)
  Receive Date: 20190712
  Receipt Date: 20190712
  Transmission Date: 20191004
  Serious: Yes (Death)
  Sender: FDA-Public Use
  Company Number: NL-PFIZER INC-2019117489

PATIENT
  Age: 68 Year
  Sex: Male
  Weight: 89 kg

DRUGS (14)
  1. SIMVASTATINE [Concomitant]
     Active Substance: SIMVASTATIN
     Dosage: 40 MG, 1X/DAY
     Route: 048
  2. SOMAVERT [Suspect]
     Active Substance: PEGVISOMANT
     Dosage: 25 MG, 3X/WEEK
  3. BECLOMETASONE/FORMOTEROL [Concomitant]
     Dosage: 1 DF (200 UG BECLOMETASON, 6 UG FORMOTEROL), 2X/DAY
     Route: 055
  4. PERINDOPRIL ERBUMI [Concomitant]
     Active Substance: PERINDOPRIL ERBUMINE
     Dosage: 2 MG, 1X/DAY
     Route: 048
  5. TESTOSTERON [Concomitant]
     Active Substance: TESTOSTERONE
     Dosage: 20 MG/G, 1X/DAY
  6. ACETYLSALICYLIC ACID [Concomitant]
     Active Substance: ASPIRIN
     Dosage: 80 MG, 1X/DAY
     Route: 048
  7. LANREOTIDE ACETATE [Concomitant]
     Active Substance: LANREOTIDE ACETATE
     Dosage: 0.4 ML, ONCE EVERY FOUR WEEKS
  8. SOMAVERT [Suspect]
     Active Substance: PEGVISOMANT
     Indication: ACROMEGALY
     Dosage: 10 MG, 3X/WEEK
     Route: 058
  9. DUTASTERIDE AND TAMSULOSIN HCL [Concomitant]
     Dosage: 1 DF (0.5 MG DUTASTERIDE, 0.4 MG TAMSULOSINE), 1X/DAY
     Route: 048
  10. HYDROCORTISON [HYDROCORTISONE] [Concomitant]
     Dosage: 20 MG, 1X/DAY
     Route: 048
  11. PERINDOPRIL ERBUMI [Concomitant]
     Active Substance: PERINDOPRIL ERBUMINE
     Dosage: 8 MG 1X/DAY
     Route: 048
  12. TRAVOPROST. [Concomitant]
     Active Substance: TRAVOPROST
     Dosage: 40 UG/ML, 1X/DAY
     Route: 047
  13. PANTOPRAZOL [Concomitant]
     Active Substance: PANTOPRAZOLE SODIUM
     Dosage: 40 MG, 1X/DAY
     Route: 048
  14. PERINDOPRIL ERBUMI [Concomitant]
     Active Substance: PERINDOPRIL ERBUMINE
     Dosage: 4 MG, 1X/DAY
     Route: 048

REACTIONS (5)
  - Dyspnoea [Fatal]
  - Product use issue [Unknown]
  - Malaise [Fatal]
  - Off label use [Unknown]
  - Acute cardiac event [Fatal]

NARRATIVE: CASE EVENT DATE: 20190707
